FAERS Safety Report 4612323-1 (Version None)
Quarter: 2005Q2

REPORT INFORMATION
  Report Type: 
  Country: None (occurrence: None)
  Receive Date: 20050308
  Receipt Date: 20041104
  Transmission Date: 20051028
  Serious: Yes (Other)
  Sender: FDA-Public Use
  Company Number: 2004UW22795

PATIENT
  Age: 51 Year
  Sex: Female
  Weight: 53.07 kg

DRUGS (3)
  1. CRESTOR [Suspect]
     Indication: BLOOD CHOLESTEROL INCREASED
     Dates: start: 20031201
  2. CRESTOR [Suspect]
     Indication: BLOOD CHOLESTEROL INCREASED
  3. FOSAMAX [Concomitant]

REACTIONS (5)
  - ADRENAL DISORDER [None]
  - FEELING ABNORMAL [None]
  - FEELING JITTERY [None]
  - NEUROPATHY [None]
  - SENSORY DISTURBANCE [None]
